FAERS Safety Report 13485971 (Version 1)
Quarter: 2017Q2

REPORT INFORMATION
  Report Type: Spontaneous
  Country: US (occurrence: US)
  Receive Date: 20170426
  Receipt Date: 20170426
  Transmission Date: 20170830
  Serious: Yes (Life-Threatening, Hospitalization)
  Sender: FDA-Public Use
  Company Number: None

PATIENT
  Age: 76 Year
  Sex: Female
  Weight: 85 kg

DRUGS (1)
  1. IFOSPHAMIDE [Suspect]
     Active Substance: IFOSFAMIDE

REACTIONS (12)
  - Nausea [None]
  - Escherichia bacteraemia [None]
  - Hyperchloraemia [None]
  - Febrile neutropenia [None]
  - Hypokalaemia [None]
  - Metabolic acidosis [None]
  - Hypophosphataemia [None]
  - Glucose urine [None]
  - Vomiting [None]
  - Nephrogenic diabetes insipidus [None]
  - Hypernatraemia [None]
  - Fanconi syndrome [None]

NARRATIVE: CASE EVENT DATE: 20170425
